FAERS Safety Report 10905271 (Version 1)
Quarter: 2015Q1

REPORT INFORMATION
  Report Type: Spontaneous
  Country: US (occurrence: None)
  Receive Date: 20150309
  Receipt Date: 20150309
  Transmission Date: 20150721
  Serious: No
  Sender: FDA-Public Use
  Company Number: None

PATIENT
  Age: 32 Year
  Sex: Female
  Weight: 52.16 kg

DRUGS (2)
  1. TOPIRAMATE. [Suspect]
     Active Substance: TOPIRAMATE
     Indication: HEADACHE
     Dosage: 2 PILLS
     Route: 048
     Dates: start: 20140513, end: 20150223
  2. TOPIRAMATE. [Suspect]
     Active Substance: TOPIRAMATE
     Indication: MIGRAINE
     Dosage: 2 PILLS
     Route: 048
     Dates: start: 20140513, end: 20150223

REACTIONS (7)
  - Depression [None]
  - Alopecia [None]
  - Insomnia [None]
  - Hair texture abnormal [None]
  - Memory impairment [None]
  - Heart rate increased [None]
  - Epistaxis [None]
